FAERS Safety Report 10237353 (Version 2)
Quarter: 2014Q2

REPORT INFORMATION
  Report Type: Report from Study
  Country: US (occurrence: US)
  Receive Date: 20140613
  Receipt Date: 20140620
  Transmission Date: 20141212
  Serious: Yes (Death, Hospitalization, Other)
  Sender: FDA-Public Use
  Company Number: US-TEVA-487679USA

PATIENT
  Age: 65 Year
  Sex: Male
  Weight: 109.2 kg

DRUGS (30)
  1. DAUNORUBICIN [Suspect]
     Indication: ACUTE MYELOID LEUKAEMIA
     Dates: end: 20140423
  2. CYTARABINE [Suspect]
     Indication: ACUTE MYELOID LEUKAEMIA
     Dates: end: 20140427
  3. MAGNESIUM HYDROXIDE ORAL LIQUID [Concomitant]
     Dosage: 20 ML DAILY;
  4. BISACODYL ENTERIC COATED [Concomitant]
     Dosage: ONCE PRN
     Route: 048
  5. DOCUSATE [Concomitant]
     Dosage: 200 MILLIGRAM DAILY;
     Route: 048
  6. PANTOPRAZOLE [Concomitant]
     Dosage: 20 MILLIGRAM DAILY;
     Route: 048
  7. GLIPIZIDE [Concomitant]
     Dosage: 20 MILLIGRAM DAILY;
     Route: 048
  8. INSULIN GLARGINE [Concomitant]
     Dosage: 22 UNITS DAILY
     Route: 058
  9. INSULIN LISPRO [Concomitant]
     Dosage: 3XDAY BEFORE MEALS
     Route: 058
  10. DEXTROSE 50% IN WATER INJECTABLE [Concomitant]
     Dosage: EVERY 15 MIN PRN
     Route: 040
  11. GLUCAGON INJECTABLE [Concomitant]
     Dosage: Q15 PRN
     Route: 030
  12. DIPHENHYDRAMINE [Concomitant]
     Dosage: Q5 MIN PRN
     Route: 048
  13. DIPHENHYDRAMINE [Concomitant]
     Dosage: ONCE
     Route: 048
  14. DIPHENHYDRAMINE [Concomitant]
     Dosage: EVERY 5 MINUTES PRN
     Route: 040
  15. ALBUTEROL [Concomitant]
     Dosage: 2.5MG/3MG NEBULZER Q4 HOUR PRN
     Route: 055
  16. BACITRACIN- POLYMYXIN B TOPICAL [Concomitant]
     Dosage: ONCE
     Route: 061
  17. BENADRYL-MAALOX- XYLOCAINE [Concomitant]
     Dosage: 40 ML DAILY; 1:1:1
  18. SALIVA SUBSTITUTE [Concomitant]
     Dosage: 1 APPLICATION
     Route: 048
  19. ACETAMINOPHEN [Concomitant]
     Dosage: 2600 MILLIGRAM DAILY;
     Route: 048
  20. ACETAMINOPHEN [Concomitant]
     Dosage: 650 MILLIGRAM DAILY;
     Route: 048
  21. HEPARIN FLUSH [Concomitant]
     Dosage: 5 ML INTRAVENOUS FLUSH EVERY 12 HOURS
  22. HEPARIN FLUSH [Concomitant]
     Dosage: 10U/ML 5 ML INTRAVENOUS FLUSH
  23. LIDOCAINE 1% INJECTABLE [Concomitant]
     Dosage: 1 ML INTRADERMAL ONCE
     Route: 023
  24. LIDOCAINE 1% INJECTABLE [Concomitant]
     Dosage: BUFFERED (PICC KIT): 1 ML INTRADERMAL ONCE
     Route: 023
  25. MEPERIDINE [Concomitant]
     Dosage: INTRAVENOUS PUSH EVERY 15 MINUTES
  26. OXYCODONE IMMEDIATE RELEASE [Concomitant]
     Dosage: 60 MILLIGRAM DAILY;
     Route: 048
  27. PROCHLORPERAZINE [Concomitant]
     Dosage: 40 MILLIGRAM DAILY;
     Route: 048
  28. PROCHLORPERAZINE [Concomitant]
     Dosage: 20 MILLIGRAM DAILY;
     Route: 040
  29. SODIUM CHLORIDE0.65% [Concomitant]
     Route: 045
  30. TEMAZEPAM [Concomitant]
     Dosage: HS
     Route: 048

REACTIONS (1)
  - Acute respiratory distress syndrome [Fatal]
